FAERS Safety Report 4499719-6 (Version None)
Quarter: 2004Q4

REPORT INFORMATION
  Report Type: 
  Country: None (occurrence: None)
  Receive Date: 20041108
  Receipt Date: 20041027
  Transmission Date: 20050328
  Serious: Yes (Hospitalization)
  Sender: FDA-Public Use
  Company Number: 2004084378

PATIENT
  Sex: 0

DRUGS (2)
  1. VIRACEPT [Suspect]
     Indication: HIV INFECTION
     Dosage: ORAL
     Route: 048
     Dates: start: 20040429
  2. ZIDOVUDINE W/LAMIVUDINE (LAMIVUDINE, ZIDOVUDINE) [Suspect]
     Indication: HIV INFECTION
     Dosage: ORAL
     Route: 048

REACTIONS (7)
  - ASCITES [None]
  - COMPLICATIONS OF MATERNAL EXPOSURE TO THERAPEUTIC DRUGS [None]
  - CONDITION AGGRAVATED [None]
  - FOETAL DISORDER [None]
  - GASTROINTESTINAL DISORDER [None]
  - HIV INFECTION [None]
  - MATERNAL DRUGS AFFECTING FOETUS [None]
